FAERS Safety Report 5526129-2 (Version None)
Quarter: 2007Q4

REPORT INFORMATION
  Report Type: 
  Country: None (occurrence: None)
  Receive Date: 20071120
  Receipt Date: 20071107
  Transmission Date: 20080405
  Serious: Yes (Hospitalization)
  Sender: FDA-Public Use
  Company Number: DSA_30869_2007

PATIENT
  Sex: Female

DRUGS (2)
  1. LORAZEPAM [Suspect]
     Dosage: (NOT THE PRESCRIBED AMOUNT. ORAL)
     Route: 048
     Dates: start: 20070825, end: 20070825
  2. AMITRIPTYLINE HYDROCHLORIDE [Suspect]
     Dosage: (1000 MG 1X NOT THE PRESCRIBED AMOUNT. ORAL)
     Route: 048
     Dates: start: 20070825, end: 20070825

REACTIONS (5)
  - ASPIRATION [None]
  - COMA [None]
  - HYPOTENSION [None]
  - INTENTIONAL OVERDOSE [None]
  - SUICIDE ATTEMPT [None]
